FAERS Safety Report 14671656 (Version 1)
Quarter: 2018Q1

REPORT INFORMATION
  Report Type: Spontaneous
  Country: US (occurrence: US)
  Receive Date: 20180323
  Receipt Date: 20180323
  Transmission Date: 20180509
  Serious: No
  Sender: FDA-Public Use
  Company Number: US-LUPIN PHARMACEUTICALS INC.-2017-02192

PATIENT
  Sex: Female
  Weight: 74.83 kg

DRUGS (4)
  1. SERTRALINE HYDROCHLORIDE TABLETS USP, 50 MG [Suspect]
     Active Substance: SERTRALINE HYDROCHLORIDE
     Dosage: 50 MG, UNK
     Route: 065
  2. SERTRALINE HYDROCHLORIDE TABLETS USP, 50 MG [Suspect]
     Active Substance: SERTRALINE HYDROCHLORIDE
     Dosage: 50 MG, QOD
     Route: 065
  3. SERTRALINE HYDROCHLORIDE TABLETS USP, 25 MG [Suspect]
     Active Substance: SERTRALINE HYDROCHLORIDE
     Indication: DEPRESSION
     Dosage: 25 MG, QD
     Route: 048
     Dates: start: 20141001
  4. SERTRALINE HYDROCHLORIDE TABLETS USP, 50 MG [Suspect]
     Active Substance: SERTRALINE HYDROCHLORIDE
     Indication: DEPRESSION
     Dosage: 50 MG, QD
     Route: 048
     Dates: start: 20161001

REACTIONS (3)
  - Agitation [Recovered/Resolved]
  - Abnormal behaviour [Not Recovered/Not Resolved]
  - Adverse event [Unknown]
